FAERS Safety Report 7087912-8 (Version None)
Quarter: 2010Q4

REPORT INFORMATION
  Report Type: 
  Country: None (occurrence: None)
  Receive Date: 20101108
  Receipt Date: 20101026
  Transmission Date: 20110411
  Serious: Yes (Disabling)
  Sender: FDA-Public Use
  Company Number: US-US-EMD SERONO, INC.-7017681

PATIENT
  Sex: Female

DRUGS (4)
  1. REBIF [Suspect]
     Indication: MULTIPLE SCLEROSIS
     Route: 058
     Dates: start: 20100113, end: 20100813
  2. BACLOFEN [Concomitant]
     Indication: MULTIPLE SCLEROSIS
  3. VITAMIN TAB [Concomitant]
     Indication: PROPHYLAXIS
  4. CHOLESTEROL MEDICATION [Concomitant]
     Indication: BLOOD CHOLESTEROL INCREASED

REACTIONS (1)
  - BLINDNESS TRANSIENT [None]
